FAERS Safety Report 23705575 (Version 1)
Quarter: 2024Q2

REPORT INFORMATION
  Report Type: Report from Study
  Country: DE (occurrence: DE)
  Receive Date: 20240404
  Receipt Date: 20240404
  Transmission Date: 20240716
  Serious: Yes (Hospitalization)
  Sender: FDA-Public Use
  Company Number: DE-ABBVIE-5704482

PATIENT
  Age: 68 Year
  Sex: Male

DRUGS (1)
  1. SKYRIZI [Suspect]
     Active Substance: RISANKIZUMAB-RZAA
     Indication: Psoriatic arthropathy
     Route: 058
     Dates: start: 20230630, end: 202401

REACTIONS (2)
  - Liver function test increased [Not Recovered/Not Resolved]
  - Blood iron increased [Not Recovered/Not Resolved]

NARRATIVE: CASE EVENT DATE: 20240101
